FAERS Safety Report 10619274 (Version 1)
Quarter: 2014Q4

REPORT INFORMATION
  Report Type: Spontaneous
  Country: DE (occurrence: DE)
  Receive Date: 20141202
  Receipt Date: 20141202
  Transmission Date: 20150529
  Serious: Yes (Hospitalization)
  Sender: FDA-Public Use
  Company Number: DE-TEVA-523751GER

PATIENT
  Age: 49 Year
  Sex: Male

DRUGS (4)
  1. OLANZAPIN [Suspect]
     Active Substance: OLANZAPINE
     Dosage: DAILY DOSE: 10 MG MILLIGRAM(S) EVERY DAY
     Route: 048
     Dates: start: 20140404
  2. OLANZAPIN [Suspect]
     Active Substance: OLANZAPINE
     Dosage: DAILY DOSE: 15 MG MILLIGRAM(S) EVERY DAY
     Route: 048
     Dates: start: 20140330, end: 20140403
  3. OLANZAPIN [Suspect]
     Active Substance: OLANZAPINE
     Dosage: DAILY DOSE: 10 MG MILLIGRAM(S) EVERY DAY
     Route: 048
     Dates: start: 20140324, end: 20140329
  4. OLANZAPIN [Suspect]
     Active Substance: OLANZAPINE
     Dosage: DAILY DOSE: 5 MG MILLIGRAM(S) EVERY DAY
     Route: 048
     Dates: start: 20140321, end: 20140323

REACTIONS (2)
  - Blood creatine phosphokinase increased [Recovered/Resolved]
  - Aspartate aminotransferase increased [Recovered/Resolved]

NARRATIVE: CASE EVENT DATE: 20140403
